FAERS Safety Report 6254010-2 (Version None)
Quarter: 2009Q3

REPORT INFORMATION
  Report Type: 
  Country: None (occurrence: None)
  Receive Date: 20090702
  Receipt Date: 20090626
  Transmission Date: 20100115
  Serious: Yes (Death)
  Sender: FDA-Public Use
  Company Number: US-TEVA-200089USA

PATIENT
  Age: 52 Year
  Sex: Male

DRUGS (4)
  1. CLONAZEPAM [Suspect]
     Indication: DEPRESSION
     Dates: start: 20040101
  2. CLONAZEPAM [Suspect]
     Indication: ANXIETY
  3. MIRTAZAPINE [Suspect]
     Indication: DEPRESSION
     Dates: start: 20040101
  4. MIRTAZAPINE [Suspect]
     Indication: ANXIETY

REACTIONS (7)
  - ABNORMAL BEHAVIOUR [None]
  - COMPLETED SUICIDE [None]
  - DRUG DEPENDENCE [None]
  - DRUG WITHDRAWAL SYNDROME [None]
  - LIBIDO DECREASED [None]
  - OVERDOSE [None]
  - SUICIDAL IDEATION [None]
